FAERS Safety Report 8860304 (Version 1)
Quarter: 2012Q4

REPORT INFORMATION
  Report Type: 
  Country: US (occurrence: US)
  Receive Date: 20121025
  Receipt Date: 20121025
  Transmission Date: 20130627
  Serious: No
  Sender: FDA-Public Use
  Company Number: US-PFIZER INC-2012262702

PATIENT
  Age: 84 Year
  Sex: Male
  Weight: 77.1 kg

DRUGS (1)
  1. TOVIAZ [Suspect]
     Indication: PROSTATIC DISORDER
     Dosage: 4 mg, daily
     Dates: start: 201210

REACTIONS (2)
  - Bladder disorder [Not Recovered/Not Resolved]
  - Asthenia [Not Recovered/Not Resolved]
